FAERS Safety Report 21676852 (Version 1)
Quarter: 2022Q4

REPORT INFORMATION
  Report Type: Report from Study
  Country: US (occurrence: US)
  Receive Date: 20221203
  Receipt Date: 20221203
  Transmission Date: 20230112
  Serious: No
  Sender: FDA-Public Use
  Company Number: US-ABBVIE-4164023

PATIENT
  Age: 12 Year
  Sex: Female

DRUGS (1)
  1. HUMIRA [Suspect]
     Active Substance: ADALIMUMAB
     Indication: Crohn^s disease
     Dosage: EVENT ONSET DATE FOR DIFFICULTY SWALLOWING AND LYMPH NODE IN THROAT AT LEAST SHOULD BE SEP 2022.
     Route: 058
     Dates: start: 20220906

REACTIONS (3)
  - Pharyngeal mass [Not Recovered/Not Resolved]
  - Dysphagia [Unknown]
  - Lymphadenopathy [Unknown]

NARRATIVE: CASE EVENT DATE: 20220906
